FAERS Safety Report 8118209-2 (Version None)
Quarter: 2012Q1

REPORT INFORMATION
  Report Type: 
  Country: None (occurrence: None)
  Receive Date: 20120131
  Receipt Date: 20120117
  Transmission Date: 20120608
  Serious: Yes (Hospitalization)
  Sender: FDA-Public Use
  Company Number: WAES 1201USA02377

PATIENT
  Age: 65 Year
  Sex: Female

DRUGS (5)
  1. PRAMIPEXOLE DIHYDROCHLORIDE [Concomitant]
  2. SINEMET [Suspect]
     Indication: PARKINSON'S DISEASE
     Dosage: 100/25 MG/DAILY, PO
     Route: 048
     Dates: start: 20090429, end: 20090508
  3. CLONAZEPAM [Concomitant]
  4. ZOLPIDEM [Concomitant]
  5. ENOXAPARIN SODIUM [Concomitant]

REACTIONS (3)
  - ON AND OFF PHENOMENON [None]
  - DRUG INEFFECTIVE [None]
  - ORTHOSTATIC HYPOTENSION [None]
